FAERS Safety Report 8893345 (Version 1)
Quarter: 2012Q4

REPORT INFORMATION
  Report Type: 
  Country: US (occurrence: US)
  Receive Date: 20121107
  Receipt Date: 20121107
  Transmission Date: 20130627
  Serious: No
  Sender: FDA-Public Use
  Company Number: US-AMGEN-USASP2011050906

PATIENT
  Age: 63 Year
  Sex: Male

DRUGS (13)
  1. ENBREL [Suspect]
     Indication: PRODUCT USED FOR UNKNOWN INDICATION
     Dosage: 50 mg, qwk
  2. COSOPT [Concomitant]
     Dosage: 0.5 %, UNK
     Route: 047
  3. UROXATRAL [Concomitant]
     Dosage: 10 mg, UNK
  4. LIPITOR [Concomitant]
     Dosage: 10 mg, UNK
  5. ALLOPURINOL [Concomitant]
     Dosage: 100 mg, UNK
  6. LATANOPROST [Concomitant]
     Dosage: 0.005 %, UNK
  7. VITAMIN B [Concomitant]
     Dosage: UNK
  8. MOBIC [Concomitant]
     Dosage: 15 mg, UNK
  9. LOSARTAN [Concomitant]
     Dosage: 100 mg, UNK
  10. COLCRYS [Concomitant]
     Dosage: 0.6 mg, UNK
  11. ASPIRIN [Concomitant]
     Dosage: 81 mg, UNK
  12. MULTIVITAMIN                       /00097801/ [Concomitant]
     Dosage: UNK
  13. MATZIM LA [Concomitant]
     Dosage: 180 mg, UNK

REACTIONS (2)
  - Dizziness [Unknown]
  - Injection site pain [Unknown]
